FAERS Safety Report 20544891 (Version 3)
Quarter: 2024Q1

REPORT INFORMATION
  Report Type: Report from Study
  Country: CA (occurrence: CA)
  Receive Date: 20220303
  Receipt Date: 20240122
  Transmission Date: 20240410
  Serious: Yes (Other)
  Sender: FDA-Public Use
  Company Number: CA-HLS-202200478

PATIENT
  Age: 29 Year
  Sex: Male

DRUGS (15)
  1. CLOZARIL [Suspect]
     Active Substance: CLOZAPINE
     Indication: Schizoaffective disorder bipolar type
     Dosage: (200 AM, 200 DINNER, 300 HS)
     Route: 048
     Dates: start: 20210121
  2. EPIVAL [Concomitant]
     Active Substance: DIVALPROEX SODIUM
     Indication: Seizure
     Dosage: AT BEDTIME
     Route: 065
  3. LITHIUM [Concomitant]
     Active Substance: LITHIUM
     Indication: Mood altered
     Dosage: 900 AT BEDTIME
     Route: 065
  4. CLONAZEPAM [Concomitant]
     Active Substance: CLONAZEPAM
     Indication: Anxiety
     Dosage: 0.5MG BID PRN
     Route: 048
  5. VYVANSE [Concomitant]
     Active Substance: LISDEXAMFETAMINE DIMESYLATE
     Indication: Product used for unknown indication
     Dosage: EVERY MORNING
     Route: 065
  6. SENNOKOT [Concomitant]
     Indication: Product used for unknown indication
     Route: 065
  7. ROSUVASTATIN [Concomitant]
     Active Substance: ROSUVASTATIN
     Indication: Product used for unknown indication
     Route: 065
  8. DILTIAZEM [Concomitant]
     Active Substance: DILTIAZEM
     Indication: Product used for unknown indication
     Route: 065
  9. SERTRALINE [Concomitant]
     Active Substance: SERTRALINE HYDROCHLORIDE
     Indication: Anxiety
     Dosage: 200MG , DOSE DECREASED
     Route: 048
     Dates: start: 20200903, end: 20240101
  10. SERTRALINE [Concomitant]
     Active Substance: SERTRALINE HYDROCHLORIDE
     Indication: Depression
     Dosage: 200MG , DOSE DECREASED
     Route: 048
     Dates: start: 20200903, end: 20240101
  11. FLUOXETINE [Concomitant]
     Active Substance: FLUOXETINE HYDROCHLORIDE
     Indication: Anxiety
     Route: 048
     Dates: start: 20231120
  12. FLUOXETINE [Concomitant]
     Active Substance: FLUOXETINE HYDROCHLORIDE
     Indication: Depression
     Route: 048
     Dates: start: 20231120
  13. UREMOL [Concomitant]
     Active Substance: UREA
     Indication: Product used for unknown indication
     Route: 065
  14. METFORMIN [Concomitant]
     Active Substance: METFORMIN HYDROCHLORIDE
     Indication: Product used for unknown indication
     Route: 065
  15. POLYETHYLENE GLYCOL 3350 [Concomitant]
     Active Substance: POLYETHYLENE GLYCOL 3350
     Indication: Product used for unknown indication
     Route: 065

REACTIONS (3)
  - Eating disorder [Not Recovered/Not Resolved]
  - Off label use [Not Recovered/Not Resolved]
  - Weight increased [Not Recovered/Not Resolved]

NARRATIVE: CASE EVENT DATE: 20210125
